FAERS Safety Report 8320894-7 (Version None)
Quarter: 2012Q2

REPORT INFORMATION
  Report Type: 
  Country: None (occurrence: None)
  Receive Date: 20120430
  Receipt Date: 20120423
  Transmission Date: 20120825
  Serious: Yes (Hospitalization, Other)
  Sender: FDA-Public Use
  Company Number: PHHY2012AT031862

PATIENT
  Age: 52 Year
  Sex: Female
  Weight: 90 kg

DRUGS (6)
  1. TRAZODONE HCL [Concomitant]
     Indication: INSOMNIA
     Dosage: 75 MG, DAILY
     Route: 048
     Dates: start: 20100625
  2. GILENYA [Suspect]
     Indication: MULTIPLE SCLEROSIS RELAPSE
     Dosage: 0.5 MG, DAILY
     Route: 048
     Dates: start: 20110811
  3. GABAPENTIN [Concomitant]
     Indication: NEURALGIA
     Dosage: 900 MG, DAILY
     Route: 048
     Dates: start: 20111118
  4. DRONABINOL [Concomitant]
     Indication: NEURALGIA
     Dosage: 10 MG, DAILY
     Route: 048
     Dates: start: 20070920
  5. TIZANIDINE HCL [Concomitant]
     Indication: MUSCLE SPASTICITY
     Dosage: 12 MG, DAILY
     Route: 048
     Dates: start: 20061202
  6. ESCITALOPRAM [Concomitant]
     Indication: CHRONIC FATIGUE SYNDROME
     Dosage: 5 MG, DAILY
     Route: 048
     Dates: start: 20100625

REACTIONS (4)
  - PAIN IN JAW [None]
  - TROPONIN T INCREASED [None]
  - MYOCARDIAL INFARCTION [None]
  - CHEST DISCOMFORT [None]
